FAERS Safety Report 5919364-2 (Version None)
Quarter: 2008Q4

REPORT INFORMATION
  Report Type: 
  Country: None (occurrence: None)
  Receive Date: 20081015
  Receipt Date: 20081010
  Transmission Date: 20090506
  Serious: Yes (Death, Hospitalization)
  Sender: FDA-Public Use
  Company Number: A0752041A

PATIENT
  Age: 84 Year
  Sex: Male

DRUGS (5)
  1. AVANDIA [Suspect]
     Dosage: 8MGD PER DAY
     Route: 048
     Dates: start: 20080610, end: 20080922
  2. AMARYL [Concomitant]
     Dates: start: 19980101, end: 20080917
  3. METFORMIN [Concomitant]
     Dates: start: 19980101, end: 20080501
  4. LIPITOR [Concomitant]
     Route: 048
     Dates: start: 19980101, end: 20080917
  5. GALVUS [Concomitant]
     Dates: start: 20080910, end: 20080917

REACTIONS (1)
  - INFARCTION [None]
